FAERS Safety Report 14120014 (Version 2)
Quarter: 2018Q2

REPORT INFORMATION
  Report Type: Spontaneous
  Country: US (occurrence: US)
  Receive Date: 20171024
  Receipt Date: 20180419
  Transmission Date: 20180711
  Serious: No
  Sender: FDA-Public Use
  Company Number: US-GLAXOSMITHKLINE-US2017GSK161676

PATIENT
  Age: 56 Year
  Sex: Male

DRUGS (1)
  1. ADVAIR HFA [Suspect]
     Active Substance: FLUTICASONE PROPIONATE\SALMETEROL XINAFOATE
     Indication: DYSPNOEA

REACTIONS (8)
  - Arthropathy [Unknown]
  - Back pain [Unknown]
  - Asthma [Unknown]
  - Road traffic accident [Unknown]
  - Nervousness [Unknown]
  - Dyspnoea [Unknown]
  - Malaise [Unknown]
  - Knee operation [Unknown]

NARRATIVE: CASE EVENT DATE: 20170514
